FAERS Safety Report 4864534-8 (Version None)
Quarter: 2005Q4

REPORT INFORMATION
  Report Type: 
  Country: None (occurrence: None)
  Receive Date: 20051222
  Receipt Date: 20051007
  Transmission Date: 20060501
  Serious: Yes (Hospitalization)
  Sender: FDA-Public Use
  Company Number: PL-ROCHE-420363

PATIENT
  Age: 56 Year
  Sex: Male

DRUGS (8)
  1. MYCOPHENOLATE MOFETIL [Suspect]
     Route: 048
     Dates: start: 20050612
  2. TACROLIMUS [Suspect]
     Route: 048
     Dates: start: 20050612, end: 20050613
  3. TACROLIMUS [Suspect]
     Route: 048
     Dates: start: 20050614
  4. PREDNISONE TAB [Suspect]
     Route: 048
     Dates: start: 20050612
  5. FUROSEMIDE [Concomitant]
  6. FAMOTIDINE [Concomitant]
     Dates: start: 20050613
  7. PERINDOPRIL [Concomitant]
  8. DOXAZOSIN [Concomitant]
     Dates: start: 20050620

REACTIONS (2)
  - HYPOCALCAEMIA [None]
  - RENAL ARTERIOSCLEROSIS [None]
